FAERS Safety Report 19235162 (Version 1)
Quarter: 2021Q2

REPORT INFORMATION
  Report Type: Report from Study
  Country: None (occurrence: CO)
  Receive Date: 20210509
  Receipt Date: 20210509
  Transmission Date: 20210717
  Serious: Yes (Other)
  Sender: FDA-Public Use
  Company Number: CO-ABBVIE-21K-036-3896741-00

PATIENT
  Age: 64 Year
  Sex: Female
  Weight: 70 kg

DRUGS (2)
  1. HUMIRA [Suspect]
     Active Substance: ADALIMUMAB
     Indication: ANKYLOSING SPONDYLITIS
     Route: 058
     Dates: end: 20210329
  2. HUMIRA [Suspect]
     Active Substance: ADALIMUMAB
     Indication: ANKYLOSING SPONDYLITIS
     Route: 058
     Dates: start: 20180104

REACTIONS (3)
  - Coagulopathy [Recovering/Resolving]
  - Tooth extraction [Recovering/Resolving]
  - Post procedural inflammation [Recovering/Resolving]

NARRATIVE: CASE EVENT DATE: 20210329
